FAERS Safety Report 22843602 (Version 2)
Quarter: 2023Q4

REPORT INFORMATION
  Report Type: Spontaneous
  Country: NL (occurrence: NL)
  Receive Date: 20230821
  Receipt Date: 20231124
  Transmission Date: 20240110
  Serious: Yes (Hospitalization)
  Sender: FDA-Public Use
  Company Number: NL-SPARK THERAPEUTICS, INC.-NL-SPK-23-00097

PATIENT
  Age: 39 Year
  Sex: Male
  Weight: 77 kg

DRUGS (2)
  1. LUXTURNA [Suspect]
     Active Substance: VORETIGENE NEPARVOVEC-RZYL
     Indication: Product used for unknown indication
     Dosage: 0.3 ML (1.5X10E11(VG)), SINGLE, SUBRETINAL USE
     Dates: start: 20230508, end: 20230508
  2. LUXTURNA [Suspect]
     Active Substance: VORETIGENE NEPARVOVEC-RZYL
     Indication: Product used for unknown indication
     Dosage: UNK
     Dates: start: 20230508, end: 20230508

REACTIONS (2)
  - Testis cancer [Unknown]
  - Metastases to lung [Unknown]

NARRATIVE: CASE EVENT DATE: 20230727
